FAERS Safety Report 17920153 (Version 4)
Quarter: 2024Q4

REPORT INFORMATION
  Report Type: Report from Study
  Country: US (occurrence: US)
  Receive Date: 20200620
  Receipt Date: 20241023
  Transmission Date: 20250114
  Serious: Yes (Hospitalization, Other)
  Sender: ROCHE
  Company Number: US-ROCHE-2621847

PATIENT
  Age: 53 Year
  Sex: Female
  Weight: 70.31 kg

DRUGS (8)
  1. OCREVUS [Suspect]
     Active Substance: OCRELIZUMAB
     Indication: Primary progressive multiple sclerosis
     Dosage: 60 MG MIXED IN 500 CC NS-IV ACCORDING TO GENENTECH PROTOCOL
     Route: 042
     Dates: start: 201611
  2. OCREVUS [Suspect]
     Active Substance: OCRELIZUMAB
     Indication: Relapsing multiple sclerosis
  3. BACLOFEN [Concomitant]
     Active Substance: BACLOFEN
     Indication: Muscle spasticity
     Dosage: INDICATION: MUSCLE RELAXER ELASTICITY OF LEG
  4. BACLOFEN [Concomitant]
     Active Substance: BACLOFEN
     Dosage: INDICATION: MUSCLE RELAXER ELASTICITY OF LEG?STARTED FOR A COUPLE OF YEARS AGO
     Route: 048
  5. OXYBUTYNIN [Concomitant]
     Active Substance: OXYBUTYNIN
     Indication: Hypertonic bladder
  6. OXYBUTYNIN [Concomitant]
     Active Substance: OXYBUTYNIN
     Indication: Bladder spasm
     Route: 048
     Dates: start: 2018, end: 202406
  7. VITAMIN D3 [Concomitant]
     Active Substance: CHOLECALCIFEROL
     Indication: Vitamin D decreased
  8. BIOTIN [Concomitant]
     Active Substance: BIOTIN

REACTIONS (14)
  - Urinary tract infection [Recovered/Resolved]
  - Fall [Unknown]
  - Hip fracture [Recovered/Resolved]
  - Multiple sclerosis [Unknown]
  - Balance disorder [Recovered/Resolved]
  - Musculoskeletal stiffness [Unknown]
  - Gait spastic [Unknown]
  - Muscular weakness [Unknown]
  - Muscle spasms [Unknown]
  - Ataxia [Unknown]
  - Dizziness [Recovered/Resolved]
  - Asthenia [Recovered/Resolved]
  - Gait disturbance [Recovered/Resolved]
  - Neuropathy peripheral [Not Recovered/Not Resolved]

NARRATIVE: CASE EVENT DATE: 20190101
